FAERS Safety Report 15904465 (Version 2)
Quarter: 2019Q1

REPORT INFORMATION
  Report Type: Report from Study
  Country: GB (occurrence: GB)
  Receive Date: 20190204
  Receipt Date: 20190214
  Transmission Date: 20190417
  Serious: Yes (Hospitalization, Other)
  Sender: FDA-Public Use
  Company Number: GB-ACCORD-105268

PATIENT
  Age: 50 Year
  Sex: Female

DRUGS (10)
  1. DOCETAXEL. [Suspect]
     Active Substance: DOCETAXEL
     Indication: HER-2 POSITIVE BREAST CANCER
     Route: 042
     Dates: start: 20160621
  2. TRASTUZUMAB/EMTANSINE [Suspect]
     Active Substance: ADO-TRASTUZUMAB EMTANSINE
     Indication: HER-2 POSITIVE BREAST CANCER
     Dosage: ALSO RECEIVED 220 MG IV ON 12-JAN-2017, 3 WEEKS INTERVAL?ALSO RECEIVED 651 MG IV (LOADING DOSE)
     Route: 042
     Dates: start: 20161123
  3. TRASTUZUMAB. [Suspect]
     Active Substance: TRASTUZUMAB
     Indication: HER-2 POSITIVE BREAST CANCER
     Route: 042
     Dates: start: 20160714
  4. CAPECITABINE. [Suspect]
     Active Substance: CAPECITABINE
     Indication: HER-2 POSITIVE BREAST CANCER
     Route: 048
     Dates: start: 20160427, end: 20160525
  5. NOVORAPID [Concomitant]
     Active Substance: INSULIN ASPART
     Route: 030
  6. DAPSONE. [Concomitant]
     Active Substance: DAPSONE
     Route: 048
  7. ENOXAPARIN [Concomitant]
     Active Substance: ENOXAPARIN
     Route: 058
  8. PERTUZUMAB. [Suspect]
     Active Substance: PERTUZUMAB
     Indication: HER-2 POSITIVE BREAST CANCER
     Dosage: LOADING DOSE, ALSO RECEIVED 420 MG IV ON 14-JUL-2016, 3 WEEKS INTERVAL
     Route: 042
     Dates: start: 20160620, end: 20160620
  9. LEVEMIR [Concomitant]
     Active Substance: INSULIN DETEMIR
     Dosage: 50 UNIT
     Route: 030
  10. SEPTRIN [Concomitant]
     Active Substance: SULFAMETHOXAZOLE\TRIMETHOPRIM
     Route: 048

REACTIONS (4)
  - Neutropenic sepsis [Recovered/Resolved]
  - Oropharyngeal pain [Recovering/Resolving]
  - Vomiting [Recovered/Resolved]
  - Productive cough [Recovered/Resolved]

NARRATIVE: CASE EVENT DATE: 20160901
